FAERS Safety Report 17805858 (Version 2)
Quarter: 2020Q3

REPORT INFORMATION
  Report Type: Spontaneous
  Country: US (occurrence: US)
  Receive Date: 20200520
  Receipt Date: 20200709
  Transmission Date: 20201102
  Serious: No
  Sender: FDA-Public Use
  Company Number: US-009507513-2004USA008625

PATIENT
  Sex: Female

DRUGS (2)
  1. ETONOGESTREL (+) ETHINYL ESTRADIOL [Suspect]
     Active Substance: ETHINYL ESTRADIOL\ETONOGESTREL
     Dosage: 1 RING (POTENCY 2.7 MG/11.7 MG)
     Route: 067
  2. NUVARING [Suspect]
     Active Substance: ETHINYL ESTRADIOL\ETONOGESTREL
     Indication: CONTRACEPTION
     Dosage: 1 RING, FOR 3 YEARS
     Route: 067

REACTIONS (6)
  - Vulvovaginal pruritus [Unknown]
  - Loss of libido [Unknown]
  - Involuntary commitment [Unknown]
  - Vulvovaginal dryness [Unknown]
  - Medical device site discomfort [Unknown]
  - Abdominal pain lower [Unknown]
